FAERS Safety Report 8850818 (Version 1)
Quarter: 2012Q4

REPORT INFORMATION
  Report Type: 
  Country: DE (occurrence: DE)
  Receive Date: 20121019
  Receipt Date: 20121019
  Transmission Date: 20130627
  Serious: Yes (Death, Hospitalization, Other)
  Sender: FDA-Public Use
  Company Number: DE-PAR PHARMACEUTICAL, INC-2012SCPR004661

PATIENT

DRUGS (3)
  1. CIPROFLOXACIN ER [Suspect]
     Indication: ANTIBIOTIC THERAPY
     Dosage: UNK, Unknown
     Route: 048
  2. N-BUTYL-2-CYANOACRYLATE [Suspect]
     Indication: GASTRIC VARICES HAEMORRHAGE
     Dosage: UNK, Unknown
     Route: 050
  3. PIP/TAZ [Suspect]
     Indication: ANTIBIOTIC THERAPY
     Dosage: UNK, Unknown
     Route: 065

REACTIONS (9)
  - Multi-organ failure [Fatal]
  - Sepsis [Fatal]
  - Death [Fatal]
  - Drug resistance [Unknown]
  - Pathogen resistance [Unknown]
  - Injection site necrosis [Unknown]
  - Portal vein pressure increased [Unknown]
  - Abscess bacterial [Unknown]
  - Bacterial disease carrier [None]
